FAERS Safety Report 20290423 (Version 2)
Quarter: 2022Q1

REPORT INFORMATION
  Report Type: Spontaneous
  Country: US (occurrence: US)
  Receive Date: 20220104
  Receipt Date: 20220303
  Transmission Date: 20220424
  Serious: No
  Sender: FDA-Public Use
  Company Number: US-GLENMARK PHARMACEUTICALS-2021GMK069002

PATIENT

DRUGS (1)
  1. MOMETASONE FUROATE [Suspect]
     Active Substance: MOMETASONE FUROATE
     Indication: Pruritus
     Dosage: 2 DROPS IN EACH EAR FOR 2 WEEKS
     Route: 001

REACTIONS (4)
  - Incorrect route of product administration [Unknown]
  - Extra dose administered [Unknown]
  - Product container issue [Unknown]
  - No adverse event [Unknown]
